FAERS Safety Report 7492780-6 (Version None)
Quarter: 2011Q2

REPORT INFORMATION
  Report Type: 
  Country: None (occurrence: None)
  Receive Date: 20110519
  Receipt Date: 20110513
  Transmission Date: 20111010
  Serious: Yes (Other)
  Sender: FDA-Public Use
  Company Number: US-AMGEN-USASP2011020971

PATIENT
  Age: 44 Year
  Sex: Male
  Weight: 81 kg

DRUGS (9)
  1. AMICAR [Concomitant]
     Dosage: UNK UNK, PRN
     Route: 048
  2. CELEBREX [Concomitant]
     Dosage: 100 MG, BID
     Route: 048
  3. CALCIUM 600 PLUS VITAMIN D [Concomitant]
     Dosage: UNK UNK, BID
     Route: 048
  4. PLATELETS [Concomitant]
  5. PRILOSEC [Concomitant]
     Dosage: 20 MG, UNK
     Route: 048
  6. NPLATE [Suspect]
     Indication: THROMBOCYTOPENIA
     Dosage: 750 A?G, QWK
     Route: 058
     Dates: start: 20100407, end: 20100802
  7. TRILEPTAL [Concomitant]
     Dosage: 6 MG, BID
     Route: 048
  8. HYDROGEN PEROXIDE SOLUTION [Concomitant]
  9. AZITHROMYCIN [Concomitant]
     Dosage: 250 MG, UNK

REACTIONS (26)
  - EXTRAMEDULLARY HAEMOPOIESIS [None]
  - HAEMORRHAGE [None]
  - PURPURA [None]
  - THROMBOCYTOSIS [None]
  - RASH [None]
  - LEUKOCYTOSIS [None]
  - HEPATIC NEOPLASM [None]
  - PETECHIAE [None]
  - STOMATITIS [None]
  - DIZZINESS [None]
  - HEADACHE [None]
  - ABDOMINAL PAIN [None]
  - GINGIVAL BLEEDING [None]
  - STAPHYLOCOCCAL SEPSIS [None]
  - BLAST CELL COUNT INCREASED [None]
  - MOUTH HAEMORRHAGE [None]
  - BLOOD BLISTER [None]
  - ECCHYMOSIS [None]
  - THROMBOCYTOPENIA [None]
  - FATIGUE [None]
  - HYPOAESTHESIA [None]
  - HEPATOMEGALY [None]
  - EAR PAIN [None]
  - THERAPEUTIC RESPONSE DECREASED [None]
  - ERYTHEMA [None]
  - UPPER RESPIRATORY TRACT INFECTION [None]
